FAERS Safety Report 20583633 (Version 1)
Quarter: 2022Q1

REPORT INFORMATION
  Report Type: Spontaneous
  Country: US (occurrence: None)
  Receive Date: 20220311
  Receipt Date: 20220311
  Transmission Date: 20220423
  Serious: No
  Sender: FDA-Public Use
  Company Number: None

PATIENT
  Age: 25 Year
  Sex: Male

DRUGS (1)
  1. OCTREOTIDE [Suspect]
     Active Substance: OCTREOTIDE
     Indication: Product used for unknown indication
     Dosage: 50MCG DAIOY?
     Route: 058

REACTIONS (3)
  - Inappropriate schedule of product administration [None]
  - Insurance issue [None]
  - Product availability issue [None]

NARRATIVE: CASE EVENT DATE: 20220306
